FAERS Safety Report 16268258 (Version 1)
Quarter: 2019Q2

REPORT INFORMATION
  Report Type: Spontaneous
  Country: CN (occurrence: CN)
  Receive Date: 20190503
  Receipt Date: 20190503
  Transmission Date: 20190711
  Serious: Yes (Disabling, Other)
  Sender: FDA-Public Use
  Company Number: CN-009507513-1904CHN012411

PATIENT
  Age: 55 Year
  Sex: Male
  Weight: 62 kg

DRUGS (3)
  1. AVELOX [Concomitant]
     Active Substance: MOXIFLOXACIN HYDROCHLORIDE
     Indication: PNEUMONIA
     Dosage: 0.4 GRAM, QD
     Route: 041
     Dates: start: 20190421, end: 20190423
  2. TIENAM [Suspect]
     Active Substance: CILASTATIN SODIUM\IMIPENEM
     Indication: PNEUMONIA
     Dosage: 0.5 GRAM, Q8H
     Route: 041
     Dates: start: 20190421, end: 201904
  3. TIENAM [Suspect]
     Active Substance: CILASTATIN SODIUM\IMIPENEM
     Dosage: 0.5 GRAM, Q12H
     Route: 041
     Dates: start: 201904, end: 20190422

REACTIONS (2)
  - Delirium [Unknown]
  - Dysphoria [Unknown]

NARRATIVE: CASE EVENT DATE: 20190421
